FAERS Safety Report 26208726 (Version 1)
Quarter: 2025Q4

REPORT INFORMATION
  Report Type: Spontaneous
  Country: US (occurrence: US)
  Receive Date: 20251229
  Receipt Date: 20251229
  Transmission Date: 20260117
  Serious: No
  Sender: GALPHARM INTERNATIONAL
  Company Number: US-PERRIGO-25US011269

PATIENT
  Age: 53 Year
  Sex: Female
  Weight: 58 kg

DRUGS (2)
  1. TIOCONAZOLE [Suspect]
     Active Substance: TIOCONAZOLE
     Indication: Vulvovaginal mycotic infection
     Dosage: 1/4 TO 1/2 DOSE, SINGLE
     Route: 067
     Dates: start: 20250915, end: 20250915
  2. TIOCONAZOLE [Suspect]
     Active Substance: TIOCONAZOLE
     Dosage: 1/2 DOSE, SINGLE
     Route: 061
     Dates: start: 20250915, end: 20250915

REACTIONS (2)
  - Underdose [Recovered/Resolved]
  - Accidental exposure to product [Recovered/Resolved]

NARRATIVE: CASE EVENT DATE: 20250915
